FAERS Safety Report 8356704-1 (Version None)
Quarter: 2012Q2

REPORT INFORMATION
  Report Type: 
  Country: None (occurrence: None)
  Receive Date: 20120511
  Receipt Date: 20120511
  Transmission Date: 20120825
  Serious: Yes (Other)
  Sender: FDA-Public Use
  Company Number: None

PATIENT
  Sex: Female

DRUGS (2)
  1. LIPITOR [Suspect]
     Indication: HYPERLIPIDAEMIA
     Dosage: 10 + 20MG QHS UNKNOWN  EARLY 90'S - 2 MONTHS
  2. CRESTOR [Suspect]
     Indication: HYPERLIPIDAEMIA
     Dosage: 10 + 20MG QHS UNKNOWN LATE 90'S

REACTIONS (2)
  - MYALGIA [None]
  - ARTHRALGIA [None]
